FAERS Safety Report 8604770-8 (Version None)
Quarter: 2012Q3

REPORT INFORMATION
  Report Type: 
  Country: None (occurrence: None)
  Receive Date: 20120808
  Receipt Date: 20120808
  Transmission Date: 20120928
  Serious: Yes (Other)
  Sender: FDA-Public Use
  Company Number: None

PATIENT
  Age: 72 Year
  Sex: Female
  Weight: 90.7194 kg

DRUGS (5)
  1. TRAMADOL HCL [Concomitant]
  2. LISINOPRIL [Concomitant]
  3. SINGULAIR [Concomitant]
  4. OXYCONTIN [Concomitant]
  5. TAMSULOSIN HCL [Suspect]
     Indication: URINARY RETENTION
     Dosage: 1 1 TIME PO
     Route: 048
     Dates: start: 20120730, end: 20120731

REACTIONS (1)
  - NAUSEA [None]
